FAERS Safety Report 20480941 (Version 2)
Quarter: 2022Q1

REPORT INFORMATION
  Report Type: Spontaneous
  Country: US (occurrence: None)
  Receive Date: 20220216
  Receipt Date: 20220331
  Transmission Date: 20220423
  Serious: Yes (Other)
  Sender: FDA-Public Use
  Company Number: 2022A069325

PATIENT
  Age: 717 Month
  Sex: Female
  Weight: 77.1 kg

DRUGS (1)
  1. SYMBICORT [Suspect]
     Active Substance: BUDESONIDE\FORMOTEROL FUMARATE DIHYDRATE
     Indication: Chronic obstructive pulmonary disease
     Dosage: 160/4.5 UG 120 INHALATIONS 2 PUFFS TWICE DAY
     Route: 055

REACTIONS (9)
  - Chronic sinusitis [Recovered/Resolved]
  - Lung disorder [Recovered/Resolved]
  - Illness [Recovered/Resolved]
  - Dyspnoea [Not Recovered/Not Resolved]
  - Device leakage [Unknown]
  - Wrong technique in device usage process [Unknown]
  - Product use complaint [Unknown]
  - Device use issue [Unknown]
  - Device delivery system issue [Unknown]

NARRATIVE: CASE EVENT DATE: 20220101
